FAERS Safety Report 11457848 (Version 5)
Quarter: 2015Q4

REPORT INFORMATION
  Report Type: Report from Study
  Country: US (occurrence: US)
  Receive Date: 20150904
  Receipt Date: 20151023
  Transmission Date: 20160304
  Serious: Yes (Death, Hospitalization)
  Sender: FDA-Public Use
  Company Number: US-ROCHE-1624334

PATIENT
  Age: 78 Year
  Sex: Male
  Weight: 74.2 kg

DRUGS (17)
  1. ASPIRIN. [Concomitant]
     Active Substance: ASPIRIN
     Route: 048
     Dates: start: 20060805
  2. ASPIRIN. [Concomitant]
     Active Substance: ASPIRIN
     Route: 048
     Dates: start: 20150812, end: 20150816
  3. LIPITOR [Concomitant]
     Active Substance: ATORVASTATIN CALCIUM
     Route: 048
     Dates: start: 200605
  4. LISINOPRIL. [Concomitant]
     Active Substance: LISINOPRIL
     Route: 048
     Dates: start: 20060805
  5. HYDROCORTISON [Concomitant]
     Active Substance: HYDROCORTISONE
     Route: 048
     Dates: start: 20150511, end: 20150813
  6. VEMURAFENIB [Suspect]
     Active Substance: VEMURAFENIB
     Indication: MALIGNANT MELANOMA
     Dosage: DAYS 1-21 OF 28 DAY CYCLE
     Route: 048
     Dates: start: 20150730, end: 20150808
  7. LEVOTHYROXINE SODIUM. [Concomitant]
     Active Substance: LEVOTHYROXINE SODIUM
     Route: 048
  8. CLOPIDOGREL [Concomitant]
     Active Substance: CLOPIDOGREL BISULFATE
     Route: 048
     Dates: start: 20060805, end: 20150816
  9. LEVOTHYROXINE SODIUM. [Concomitant]
     Active Substance: LEVOTHYROXINE SODIUM
     Route: 048
     Dates: start: 20150818, end: 20150822
  10. LEVOCETIRIZINE DIHYDROCHLORIDE. [Concomitant]
     Active Substance: LEVOCETIRIZINE DIHYDROCHLORIDE
     Route: 048
     Dates: start: 201403
  11. FLUTICASONE PROPIONATE. [Concomitant]
     Active Substance: FLUTICASONE PROPIONATE
     Dosage: 1 INHALED
     Route: 050
     Dates: start: 201403
  12. TAMSULOSIN HCL [Concomitant]
     Active Substance: TAMSULOSIN
     Route: 048
     Dates: start: 2012
  13. TOPROL XL [Concomitant]
     Active Substance: METOPROLOL SUCCINATE
     Route: 048
     Dates: start: 200605
  14. HYDROCORTISON [Concomitant]
     Active Substance: HYDROCORTISONE
     Dosage: IV PUSH
     Route: 065
     Dates: start: 20150813, end: 20150814
  15. COBIMETINIB [Suspect]
     Active Substance: COBIMETINIB
     Indication: MALIGNANT MELANOMA
     Dosage: DAYS 1-21 OF A 28 DAY CYCLE
     Route: 048
     Dates: start: 20150730, end: 20150808
  16. BEVACIZUMAB [Suspect]
     Active Substance: BEVACIZUMAB
     Indication: MALIGNANT MELANOMA
     Dosage: EVERY TWO WEEKS, 4 WEEK (28-DAY) CYCLES
     Route: 042
     Dates: start: 20150730
  17. LEVOTHYROXINE SODIUM. [Concomitant]
     Active Substance: LEVOTHYROXINE SODIUM
     Route: 050
     Dates: start: 20150816, end: 20150817

REACTIONS (13)
  - Renal impairment [Unknown]
  - Cholecystitis [Unknown]
  - Multi-organ disorder [Unknown]
  - Dehydration [Unknown]
  - Retroperitoneal haemorrhage [Fatal]
  - Mental status changes [Unknown]
  - Blood creatinine increased [Recovering/Resolving]
  - Hypotension [Recovering/Resolving]
  - Muscle haemorrhage [Fatal]
  - Respiratory failure [Unknown]
  - Pyrexia [Recovering/Resolving]
  - Fatigue [Recovering/Resolving]
  - Diarrhoea [Not Recovered/Not Resolved]

NARRATIVE: CASE EVENT DATE: 20150803
